FAERS Safety Report 24859657 (Version 1)
Quarter: 2025Q1

REPORT INFORMATION
  Report Type: Spontaneous
  Country: US (occurrence: US)
  Receive Date: 20250119
  Receipt Date: 20250119
  Transmission Date: 20250409
  Serious: Yes (Other)
  Sender: GRAVITI PHARMACEUTICALS PRIVATE LIMITED
  Company Number: US-GRAVITIPHARMA-GRA-2501-US-LIT-0016

PATIENT
  Age: 85 Year
  Sex: Female

DRUGS (1)
  1. ATORVASTATIN CALCIUM [Suspect]
     Active Substance: ATORVASTATIN CALCIUM
     Indication: Cerebrovascular accident
     Route: 065

REACTIONS (1)
  - Autoimmune hepatitis [Recovered/Resolved]
